FAERS Safety Report 10699897 (Version 1)
Quarter: 2015Q1

REPORT INFORMATION
  Report Type: Spontaneous
  Country: US (occurrence: None)
  Receive Date: 20150108
  Receipt Date: 20150108
  Transmission Date: 20150721
  Serious: Yes (Other)
  Sender: FDA-Public Use
  Company Number: None

PATIENT
  Age: 11 Year
  Sex: Male
  Weight: 41.73 kg

DRUGS (6)
  1. VITAMIN B COMPLEX WITH C [Concomitant]
     Active Substance: ASCORBIC ACID\CALCIUM PANTOTHENATE\CYANOCOBALAMIN\NIACINAMIDE\PYRIDOXINE HYDROCHLORIDE\RIBOFLAVIN\THIAMINE MONONITRATE
  2. KEPPRA [Concomitant]
     Active Substance: LEVETIRACETAM
  3. TOPAMAX [Concomitant]
     Active Substance: TOPIRAMATE
  4. CARNITOR [Concomitant]
     Active Substance: LEVOCARNITINE
  5. TEGRETOL [Suspect]
     Active Substance: CARBAMAZEPINE
     Indication: SEIZURE
     Dates: start: 20141009, end: 20141206
  6. ONFI [Concomitant]
     Active Substance: CLOBAZAM

REACTIONS (1)
  - Neutropenia [None]

NARRATIVE: CASE EVENT DATE: 20141112
